FAERS Safety Report 8987590 (Version 2)
Quarter: 2013Q3

REPORT INFORMATION
  Report Type: Report from Study
  Country: ES (occurrence: ES)
  Receive Date: 20121227
  Receipt Date: 20130717
  Transmission Date: 20140515
  Serious: Yes (Death, Life-Threatening)
  Sender: FDA-Public Use
  Company Number: ES-CELGENEUS-144-50794-12122535

PATIENT
  Age: 76 Year
  Sex: Male

DRUGS (4)
  1. VIDAZA [Suspect]
     Indication: ACUTE MYELOID LEUKAEMIA
     Dosage: 120 DOSAGE FORMS
     Route: 065
     Dates: start: 20090216, end: 20091123
  2. ONDASETRON [Concomitant]
     Indication: ANTIEMETIC SUPPORTIVE CARE
     Route: 065
     Dates: start: 20090216, end: 20091123
  3. TRIMETHOPRIM [Concomitant]
     Indication: ANTIEMETIC SUPPORTIVE CARE
     Route: 065
     Dates: start: 20090216, end: 20091123
  4. SULFAMETHOXAZOLE [Concomitant]
     Indication: ANTIEMETIC SUPPORTIVE CARE
     Route: 065
     Dates: start: 20090216, end: 20091123

REACTIONS (2)
  - Septic shock [Fatal]
  - Gastrointestinal haemorrhage [Fatal]
